FAERS Safety Report 25170247 (Version 1)
Quarter: 2025Q2

REPORT INFORMATION
  Report Type: Spontaneous
  Country: FR (occurrence: FR)
  Receive Date: 20250407
  Receipt Date: 20250407
  Transmission Date: 20250716
  Serious: Yes (Other)
  Sender: UCB
  Company Number: FR-UCBSA-2025020029

PATIENT
  Age: 14 Year
  Sex: Female

DRUGS (1)
  1. VIMPAT [Suspect]
     Active Substance: LACOSAMIDE
     Indication: Epilepsy
     Dates: start: 20190201

REACTIONS (1)
  - Myoclonic epilepsy [Not Recovered/Not Resolved]

NARRATIVE: CASE EVENT DATE: 20190201
